FAERS Safety Report 9468654 (Version 2)
Quarter: 2013Q3

REPORT INFORMATION
  Report Type: Spontaneous
  Country: FR (occurrence: FR)
  Receive Date: 20130821
  Receipt Date: 20130829
  Transmission Date: 20140515
  Serious: Yes (Other)
  Sender: FDA-Public Use
  Company Number: ALCN2013FR004200

PATIENT
  Age: 36 Year
  Sex: Male
  Weight: 103 kg

DRUGS (2)
  1. AZOPT [Suspect]
     Indication: GLAUCOMA
     Dosage: 1 GTT, BID
     Route: 047
  2. IMODIUM [Concomitant]

REACTIONS (2)
  - Visual field defect [Not Recovered/Not Resolved]
  - Metamorphopsia [Unknown]
